FAERS Safety Report 15611401 (Version 1)
Quarter: 2018Q4

REPORT INFORMATION
  Report Type: Spontaneous
  Country: US (occurrence: US)
  Receive Date: 20181113
  Receipt Date: 20181113
  Transmission Date: 20190205
  Serious: No
  Sender: FDA-Public Use
  Company Number: US-009507513-1811USA002844

PATIENT
  Sex: Male

DRUGS (1)
  1. INTRON A [Suspect]
     Active Substance: INTERFERON ALFA-2B
     Indication: MYCOSIS FUNGOIDES
     Dosage: 1.5 MILLION UNITS (0.25ML) UNDER THE SKIN, 3 TIMES WEEKLY (18MM UNIT/3ML MDV)
     Route: 058
     Dates: start: 201810

REACTIONS (3)
  - Needle issue [Unknown]
  - Product use in unapproved indication [Unknown]
  - Limb injury [Unknown]

NARRATIVE: CASE EVENT DATE: 2018
